FAERS Safety Report 25340780 (Version 1)
Quarter: 2025Q2

REPORT INFORMATION
  Report Type: Spontaneous
  Country: US (occurrence: US)
  Receive Date: 20250521
  Receipt Date: 20250521
  Transmission Date: 20250716
  Serious: No
  Sender: ROCHE
  Company Number: US-ROCHE-10000284852

PATIENT
  Sex: Female

DRUGS (16)
  1. XOLAIR [Suspect]
     Active Substance: OMALIZUMAB
     Indication: Asthma
     Route: 058
     Dates: start: 20250417
  2. ALBUTEROL [Concomitant]
     Active Substance: ALBUTEROL
  3. DESVENLAFAXI [Concomitant]
  4. EPINEPHRINE [Concomitant]
     Active Substance: EPINEPHRINE
  5. ERYTHROMYCIN [Concomitant]
     Active Substance: ERYTHROMYCIN
  6. FLUTICASONE [Concomitant]
     Active Substance: FLUTICASONE
  7. IRBESARTAN [Concomitant]
     Active Substance: IRBESARTAN
  8. MOUNJARO [Concomitant]
     Active Substance: TIRZEPATIDE
  9. OMEPRAZOLE [Concomitant]
     Active Substance: OMEPRAZOLE
  10. PREGABALIN [Concomitant]
     Active Substance: PREGABALIN
  11. RESTASIS [Concomitant]
     Active Substance: CYCLOSPORINE
  12. ROSUVASTATIN [Concomitant]
     Active Substance: ROSUVASTATIN
  13. SUCRALFATE [Concomitant]
     Active Substance: SUCRALFATE
  14. SUMATRIPTAN [Concomitant]
     Active Substance: SUMATRIPTAN
  15. TRELEGY ELLI [Concomitant]
  16. VITAMIN D [Concomitant]
     Active Substance: VITAMIN D NOS

REACTIONS (4)
  - Injection site bruising [Recovered/Resolved]
  - Injection site pruritus [Recovered/Resolved]
  - Dizziness [Recovered/Resolved]
  - Gastrointestinal disorder [Recovered/Resolved]
